FAERS Safety Report 23154455 (Version 1)
Quarter: 2023Q4

REPORT INFORMATION
  Report Type: Spontaneous
  Country: JP (occurrence: JP)
  Receive Date: 20231107
  Receipt Date: 20231107
  Transmission Date: 20240110
  Serious: No
  Sender: FDA-Public Use
  Company Number: JP-SCALL-2023-3036348

PATIENT

DRUGS (3)
  1. DUTASTERIDE [Suspect]
     Active Substance: DUTASTERIDE
     Route: 048
  2. SILODOSIN [Concomitant]
     Active Substance: SILODOSIN
     Route: 065
  3. vibegron (Beova) [Concomitant]
     Route: 065

REACTIONS (1)
  - Wrong product administered [Unknown]
